FAERS Safety Report 4374178-2 (Version None)
Quarter: 2004Q2

REPORT INFORMATION
  Report Type: 
  Country: None (occurrence: None)
  Receive Date: 20040608
  Receipt Date: 20040608
  Transmission Date: 20050107
  Serious: Yes (Hospitalization)
  Sender: FDA-Public Use
  Company Number: None

PATIENT
  Age: 56 Year
  Sex: Female
  Weight: 99.7913 kg

DRUGS (4)
  1. TOPOTECAN(STUDY DRUG CONT. INFUSION) [Suspect]
     Indication: CERVIX CARCINOMA
     Dosage: 0.15MG/M2 /D
  2. CISPLATIN [Suspect]
     Dosage: 20  MG/M2
  3. DOUBLE LUMEN PAS-V [Concomitant]
  4. PICC LINE [Concomitant]

REACTIONS (4)
  - AXILLARY VEIN THROMBOSIS [None]
  - JUGULAR VEIN THROMBOSIS [None]
  - PULMONARY EMBOLISM [None]
  - SUBCLAVIAN VEIN THROMBOSIS [None]
